FAERS Safety Report 11839537 (Version 1)
Quarter: 2015Q4

REPORT INFORMATION
  Report Type: Spontaneous
  Country: JP (occurrence: JP)
  Receive Date: 20151216
  Receipt Date: 20151216
  Transmission Date: 20160305
  Serious: Yes (Death, Other)
  Sender: FDA-Public Use
  Company Number: JP-BAYER-2015-481753

PATIENT
  Age: 37 Year
  Sex: Male

DRUGS (9)
  1. CIPROFLOXACIN. [Suspect]
     Active Substance: CIPROFLOXACIN
     Indication: PNEUMONIA
     Dosage: UNK
  2. TACROLIMUS. [Concomitant]
     Active Substance: TACROLIMUS
     Dosage: 15 NG/ML, UNK
  3. MYCOPHENOLATE MOFETIL. [Concomitant]
     Active Substance: MYCOPHENOLATE MOFETIL
     Dosage: 1 G, BID
     Route: 048
  4. MEROPENEM. [Suspect]
     Active Substance: MEROPENEM
     Indication: PNEUMONIA
  5. VANCOMYCIN [Suspect]
     Active Substance: VANCOMYCIN
     Indication: PNEUMONIA
  6. VANCOMYCIN [Suspect]
     Active Substance: VANCOMYCIN
     Indication: SEPSIS
  7. MEROPENEM. [Suspect]
     Active Substance: MEROPENEM
     Indication: SEPSIS
  8. CIPROFLOXACIN. [Suspect]
     Active Substance: CIPROFLOXACIN
     Indication: SEPSIS
  9. BASILIXIMAB [Concomitant]
     Active Substance: BASILIXIMAB
     Dosage: 20 MG, UNK
     Route: 042

REACTIONS (3)
  - Pulmonary sepsis [Fatal]
  - Respiratory failure [None]
  - Drug ineffective [None]
